FAERS Safety Report 4405049-0 (Version None)
Quarter: 2004Q2

REPORT INFORMATION
  Report Type: 
  Country: None (occurrence: None)
  Receive Date: 20040621
  Receipt Date: 20040329
  Transmission Date: 20050107
  Serious: No
  Sender: FDA-Public Use
  Company Number: A-US2004-05560

PATIENT
  Age: 74 Year
  Sex: Female

DRUGS (8)
  1. TRACLEER [Suspect]
     Indication: PULMONARY HYPERTENSION
     Dosage: 62.5 MG, BID, ORAL
     Route: 048
     Dates: start: 20040326, end: 20040328
  2. INHALERS FOR ASTHMA [Concomitant]
  3. THEO-DUR [Concomitant]
  4. LASIX [Concomitant]
  5. SINGULAIR [Concomitant]
  6. COLCHINCINE [Concomitant]
  7. XANAX [Concomitant]
  8. BACTRIM DS [Concomitant]

REACTIONS (1)
  - OEDEMA PERIPHERAL [None]
